FAERS Safety Report 11197747 (Version 1)
Quarter: 2015Q2

REPORT INFORMATION
  Report Type: Spontaneous
  Country: US (occurrence: US)
  Receive Date: 20150617
  Receipt Date: 20150617
  Transmission Date: 20150821
  Serious: No
  Sender: FDA-Public Use
  Company Number: US-009507513-1506USA008274

PATIENT
  Sex: Female

DRUGS (3)
  1. SOVALDI [Suspect]
     Active Substance: SOFOSBUVIR
  2. PEGINTRON [Suspect]
     Active Substance: PEGINTERFERON ALFA-2B
  3. REBETOL [Suspect]
     Active Substance: RIBAVIRIN
     Route: 048

REACTIONS (1)
  - Haemolytic anaemia [Unknown]
